FAERS Safety Report 20771425 (Version 4)
Quarter: 2025Q3

REPORT INFORMATION
  Report Type: Spontaneous
  Country: JP (occurrence: JP)
  Receive Date: 20220429
  Receipt Date: 20250717
  Transmission Date: 20251021
  Serious: Yes (Disabling)
  Sender: NOVEN
  Company Number: JP-NOVEN PHARMACEUTICALS, INC.-2022-NOV-JP000398

PATIENT
  Sex: Female

DRUGS (1)
  1. ESTRADIOL [Suspect]
     Active Substance: ESTRADIOL
     Indication: Osteoporosis
     Route: 062
     Dates: start: 202004

REACTIONS (2)
  - Endometrial hyperplasia with cellular atypia [Unknown]
  - Intermenstrual bleeding [Unknown]

NARRATIVE: CASE EVENT DATE: 20210901
